FAERS Safety Report 8377339-0 (Version None)
Quarter: 2012Q2

REPORT INFORMATION
  Report Type: 
  Country: None (occurrence: None)
  Receive Date: 20120522
  Receipt Date: 20120517
  Transmission Date: 20120825
  Serious: Yes (Death)
  Sender: FDA-Public Use
  Company Number: GB-ROCHE-1059292

PATIENT
  Sex: Male
  Weight: 69.2 kg

DRUGS (8)
  1. NITROGLYCERIN [Concomitant]
     Dates: start: 19920702
  2. LUCENTIS [Suspect]
     Indication: MACULAR DEGENERATION
     Route: 050
     Dates: start: 20090914
  3. ASPIRIN [Concomitant]
     Dates: start: 20111212
  4. LAXIDO [Concomitant]
     Dates: start: 20101001
  5. OMEPRAZOLE [Concomitant]
     Dates: start: 19930802
  6. ISOSORBIDE MONONITRATE [Concomitant]
     Dates: start: 20111018
  7. TAMSULOSIN HCL [Concomitant]
     Dates: start: 20100927
  8. BETAHISTINE [Concomitant]
     Dates: start: 20120110

REACTIONS (3)
  - DEATH [None]
  - RETROPERITONEAL HAEMORRHAGE [None]
  - AORTIC ANEURYSM RUPTURE [None]
